FAERS Safety Report 25165243 (Version 3)
Quarter: 2025Q2

REPORT INFORMATION
  Report Type: Spontaneous
  Country: US (occurrence: US)
  Receive Date: 20250407
  Receipt Date: 20250419
  Transmission Date: 20250717
  Serious: No
  Sender: SANOFI AVENTIS
  Company Number: US-SA-2025SA094106

PATIENT
  Age: 29 Year
  Sex: Female

DRUGS (2)
  1. TZIELD [Suspect]
     Active Substance: TEPLIZUMAB-MZWV
     Dosage: 95 UG, QD
     Route: 065
     Dates: start: 20250327, end: 2025
  2. TZIELD [Suspect]
     Active Substance: TEPLIZUMAB-MZWV
     Dosage: 1504 UG, QD
     Route: 065
     Dates: start: 2025, end: 20250408

REACTIONS (7)
  - Respiratory tract congestion [Unknown]
  - Blood glucose increased [Unknown]
  - Pyrexia [Unknown]
  - Headache [Unknown]
  - White blood cell count decreased [Recovering/Resolving]
  - Fatigue [Unknown]
  - Hepatic enzyme increased [Unknown]

NARRATIVE: CASE EVENT DATE: 20250101
